FAERS Safety Report 7436999-9 (Version None)
Quarter: 2011Q1

REPORT INFORMATION
  Report Type: 
  Country: None (occurrence: None)
  Receive Date: 20110302
  Receipt Date: 20101123
  Transmission Date: 20110831
  Serious: No
  Sender: FDA-Public Use
  Company Number: 022765

PATIENT
  Sex: Female
  Weight: 63.5 kg

DRUGS (4)
  1. PENTASA [Concomitant]
  2. COREG [Concomitant]
  3. CIMZIA [Suspect]
     Indication: RHEUMATOID ARTHRITIS
     Dosage: 2  INJECTION SUBCUTANEOUS
     Route: 058
     Dates: start: 20101028
  4. CIMZIA [Suspect]
     Indication: CROHN'S DISEASE
     Dosage: 2  INJECTION SUBCUTANEOUS
     Route: 058
     Dates: start: 20101028

REACTIONS (2)
  - WRONG TECHNIQUE IN DRUG USAGE PROCESS [None]
  - ARTHRALGIA [None]
